FAERS Safety Report 7305100-4 (Version None)
Quarter: 2011Q1

REPORT INFORMATION
  Report Type: 
  Country: None (occurrence: None)
  Receive Date: 20110222
  Receipt Date: 20100331
  Transmission Date: 20110831
  Serious: Yes (Death, Other)
  Sender: FDA-Public Use
  Company Number: US-BAYER-2011-006316

PATIENT
  Sex: Female

DRUGS (1)
  1. TRASYLOL,TRASYLOL [Suspect]
     Indication: CARDIAC OPERATION
     Dosage: UNK
     Route: 042
     Dates: start: 20070321

REACTIONS (5)
  - RENAL FAILURE ACUTE [None]
  - INJURY [None]
  - PAIN [None]
  - DEATH [None]
  - RENAL FAILURE [None]
